FAERS Safety Report 17000682 (Version 1)
Quarter: 2020Q3

REPORT INFORMATION
  Report Type: Report from Study
  Country: BR (occurrence: BR)
  Receive Date: 20191106
  Receipt Date: 20191106
  Transmission Date: 20201104
  Serious: Yes (Hospitalization)
  Sender: FDA-Public Use
  Company Number: PHHO2015BR018670

PATIENT
  Age: 50 Year
  Sex: Female

DRUGS (2)
  1. FINGOLIMOD. [Suspect]
     Active Substance: FINGOLIMOD
     Indication: MULTIPLE SCLEROSIS
     Dosage: 0.5 MG, QD
     Route: 048
     Dates: start: 20110510, end: 20151020
  2. FINGOLIMOD. [Suspect]
     Active Substance: FINGOLIMOD
     Dosage: 0.5 MG, QD
     Route: 048
     Dates: start: 20151025

REACTIONS (1)
  - Urinary tract infection [Recovered/Resolved]

NARRATIVE: CASE EVENT DATE: 20151020
